FAERS Safety Report 6706521-0 (Version None)
Quarter: 2010Q2

REPORT INFORMATION
  Report Type: 
  Country: None (occurrence: None)
  Receive Date: 20100503
  Receipt Date: 20100428
  Transmission Date: 20101027
  Serious: Yes (Life-Threatening, Hospitalization)
  Sender: FDA-Public Use
  Company Number: PHHO2010FR06520

PATIENT
  Sex: Male
  Weight: 67 kg

DRUGS (4)
  1. MYCOPHENOLIC ACID [Suspect]
     Indication: RENAL TRANSPLANT
     Dosage: 360 MG, BID
     Route: 048
     Dates: start: 20100418
  2. NEORAL [Suspect]
     Indication: RENAL TRANSPLANT
     Dosage: 200 MG, BID
     Route: 048
     Dates: start: 20100418, end: 20100424
  3. SOLUPRED [Concomitant]
  4. SANDIMMUNE [Concomitant]

REACTIONS (4)
  - ABDOMINAL PAIN [None]
  - HERNIA [None]
  - SMALL INTESTINAL OBSTRUCTION [None]
  - SURGERY [None]
